FAERS Safety Report 4439654-2 (Version None)
Quarter: 2004Q3

REPORT INFORMATION
  Report Type: 
  Country: None (occurrence: None)
  Receive Date: 20040827
  Receipt Date: 20040811
  Transmission Date: 20050211
  Serious: Yes (Hospitalization)
  Sender: FDA-Public Use
  Company Number: DSA_24815_2004

PATIENT
  Age: 67 Year
  Sex: Female

DRUGS (2)
  1. TEVETEN HCT [Suspect]
     Indication: ESSENTIAL HYPERTENSION
     Dosage: DF UNK PO
     Route: 048
     Dates: start: 20040602, end: 20040630
  2. MELAVOTIN [Suspect]
     Indication: HYPERCHOLESTEROLAEMIA
     Dosage: 20 MG Q DAY PO
     Route: 048
     Dates: start: 20040301, end: 20040630

REACTIONS (5)
  - ALANINE AMINOTRANSFERASE INCREASED [None]
  - ASPARTATE AMINOTRANSFERASE INCREASED [None]
  - C-REACTIVE PROTEIN INCREASED [None]
  - PANCREATITIS [None]
  - WHITE BLOOD CELL COUNT INCREASED [None]
